FAERS Safety Report 6394249-9 (Version None)
Quarter: 2009Q4

REPORT INFORMATION
  Report Type: 
  Country: None (occurrence: None)
  Receive Date: 20091006
  Receipt Date: 20090924
  Transmission Date: 20100525
  Serious: Yes (Other)
  Sender: FDA-Public Use
  Company Number: 1000009178

PATIENT

DRUGS (2)
  1. ESCITALOPRAM [Suspect]
     Indication: DEPRESSION
     Dosage: ORAL
     Route: 048
  2. ACETYLSALICYLIC ACID/CAFFEINE/CODEINE (TABLETS) [Suspect]

REACTIONS (4)
  - DEPRESSION [None]
  - FLANK PAIN [None]
  - KIDNEY INFECTION [None]
  - SUICIDAL IDEATION [None]
